FAERS Safety Report 9204429 (Version 1)
Quarter: 2013Q1

REPORT INFORMATION
  Report Type: Spontaneous
  Country: US (occurrence: None)
  Receive Date: 20120709
  Receipt Date: 20120709
  Transmission Date: 20140127
  Serious: No
  Sender: FDA-Public Use
  Company Number: 2012HGS-003429

PATIENT
  Age: 37 Year
  Sex: Female
  Weight: 108.86 kg

DRUGS (11)
  1. BENLYSTA [Suspect]
     Indication: SYSTEMIC LUPUS ERYTHEMATOSUS
     Dosage: 1 IN 28 D, INTRAVENOUS DRIP
     Dates: start: 20120319
  2. PREDNISONE (PREDNISONE) (PREDNISONE) [Concomitant]
  3. PLAQUENIL (HYDROXYCHLOROQUINE PHOSPHATE) (HYDROXYCHLOROQUINE PHOSPHATE) [Concomitant]
  4. METHOTREXATE (METHOTREXATE) (METHOTREXATE) [Concomitant]
  5. CYMBALTA (DULOXETINE HYDROCHLORIDE) (DUOLEXTINE HYDROCHLORIDE) [Concomitant]
  6. TOPAMAX (TOPIRAMATE) (TOPIRAMATE) [Concomitant]
  7. GABAPENTIN (GABAPENTIN) (GABAPENTIN) [Concomitant]
  8. DILAUDID (HYDROMORPHONE HYDROCHLORIDE) (HYDROMORPHONE HYDROCHLORIDE) [Concomitant]
  9. SOMA (CARISOPRODOL) (CARISOPRODOL) [Concomitant]
  10. POTASSIUM (POTASSIUM) (POTASSIUM) [Concomitant]
  11. ACETYLSALICYLIC ACID (ACETYLSALICYLIC ACID) (ACETYLSALICYLIC ACID) [Concomitant]

REACTIONS (7)
  - Chest pain [None]
  - Fatigue [None]
  - Paraesthesia oral [None]
  - Hypokalaemia [None]
  - Palpitations [None]
  - Pruritus [None]
  - Headache [None]
